FAERS Safety Report 4697769-8 (Version None)
Quarter: 2005Q2

REPORT INFORMATION
  Report Type: 
  Country: None (occurrence: None)
  Receive Date: 20050621
  Receipt Date: 20050613
  Transmission Date: 20051028
  Serious: Yes (Other)
  Sender: FDA-Public Use
  Company Number: 200511175BWH

PATIENT
  Age: 38 Year
  Sex: Male

DRUGS (1)
  1. TRASYLOL [Suspect]
     Indication: HEART VALVE REPLACEMENT

REACTIONS (3)
  - ATRIAL THROMBOSIS [None]
  - INTRACARDIAC THROMBUS [None]
  - PROCEDURAL COMPLICATION [None]
